FAERS Safety Report 5233980-5 (Version None)
Quarter: 2007Q1

REPORT INFORMATION
  Report Type: 
  Country: None (occurrence: None)
  Receive Date: 20061204
  Receipt Date: 20060818
  Transmission Date: 20070707
  Serious: No
  Sender: FDA-Public Use
  Company Number: 2006-BP-06696BP

PATIENT
  Age: 62 Year
  Sex: Female

DRUGS (2)
  1. SPIRIVA [Suspect]
     Indication: CHRONIC OBSTRUCTIVE PULMONARY DISEASE
     Dosage: 18 MCG (18 MCG),IH
     Route: 055
     Dates: start: 20050101
  2. MANY (SPECIFICS NOT REPORTED AT THIS TIME) (ALL OTHER THERAPEUTIC PROD [Concomitant]

REACTIONS (1)
  - AGEUSIA [None]
